FAERS Safety Report 24661297 (Version 3)
Quarter: 2025Q1

REPORT INFORMATION
  Report Type: Report from Study
  Country: US (occurrence: US)
  Receive Date: 20241125
  Receipt Date: 20250312
  Transmission Date: 20250409
  Serious: Yes (Hospitalization)
  Sender: AVADEL CNS PHARMACEUTICALS, LLC
  Company Number: US-AVADEL CNS PHARMACEUTICALS, LLC-2023AVA00398

PATIENT
  Sex: Male

DRUGS (23)
  1. LUMRYZ [Suspect]
     Active Substance: SODIUM OXYBATE
     Indication: Narcolepsy
     Dosage: 9 G, ONCE NIGHTLY
     Route: 048
     Dates: start: 202310
  2. LUMRYZ [Suspect]
     Active Substance: SODIUM OXYBATE
     Indication: Sleep apnoea syndrome
     Dosage: 9 G, ONCE NIGHTLY
     Route: 048
  3. LUMRYZ [Suspect]
     Active Substance: SODIUM OXYBATE
     Dosage: 9 G, ONCE NIGHTLY
     Route: 048
  4. LUMRYZ [Suspect]
     Active Substance: SODIUM OXYBATE
     Dosage: 9 G, ONCE NIGHTLY
     Route: 048
  5. MINOXIDIL [Suspect]
     Active Substance: MINOXIDIL
  6. MODAFINIL [Concomitant]
     Active Substance: MODAFINIL
  7. FAMOTIDINE [Concomitant]
     Active Substance: FAMOTIDINE
     Dosage: 40 MG, 1X/DAY AT NIGHTTIME
  8. PANTOPRAZOLE [Concomitant]
     Active Substance: PANTOPRAZOLE
     Dosage: 40 MG, 1X/DAY IN THE MORNING
  9. CYANOCOBALAMIN [Concomitant]
     Active Substance: CYANOCOBALAMIN
     Dosage: 500 ?G, 2X/DAY (MORNING AND NIGHT)
  10. METFORMIN [Concomitant]
     Active Substance: METFORMIN HYDROCHLORIDE
     Dosage: 1000 MG, 2X/DAY (MORNING AND NIGHT)
  11. POTASSIUM CHLORIDE [Concomitant]
     Active Substance: POTASSIUM CHLORIDE
     Dosage: 30 MEQ, 1X/DAY
  12. MELOXICAM [Concomitant]
     Active Substance: MELOXICAM
     Dosage: 15 MG, 1X/DAY AT NIGHT
  13. LOSARTAN [Concomitant]
     Active Substance: LOSARTAN
     Dosage: 50 MG (HALF TABLET), 1X/DAY AT NIGHT
  14. PRAVASTATIN [Concomitant]
     Active Substance: PRAVASTATIN
     Dosage: 80 MG, 1X/DAY AT NIGHT
  15. NIFEDIPINE [Concomitant]
     Active Substance: NIFEDIPINE
     Dosage: 30 MG, 1X/DAY IN THE MORNING
  16. CETIRIZINE [Concomitant]
     Active Substance: CETIRIZINE HYDROCHLORIDE
     Dosage: 10 MG, 1X/DAY, IN THE MORNING
  17. ASPIRIN [Concomitant]
     Active Substance: ASPIRIN
     Dosage: 81 MG, 1X/DAY IN THE MORNING
  18. PRAMIPEXOLE [Concomitant]
     Active Substance: PRAMIPEXOLE
     Dosage: 1.5 MG, 2X/DAY (MORNING AND NIGHT)
  19. FUROSEMIDE [Concomitant]
     Active Substance: FUROSEMIDE
     Dosage: 40 MG, 1X/DAY IN THE MORNING
  20. AZELASTINE [Concomitant]
     Active Substance: AZELASTINE
     Dosage: UNK, 1X/DAY IN THE MORNING
  21. FLUTICASONE PROPIONATE [Concomitant]
     Active Substance: FLUTICASONE PROPIONATE
     Dosage: AT NIGHTTIME
  22. OZEMPIC [Concomitant]
     Active Substance: SEMAGLUTIDE
  23. OZEMPIC [Concomitant]
     Active Substance: SEMAGLUTIDE

REACTIONS (12)
  - Spinal operation [Unknown]
  - Hospitalisation [Not Recovered/Not Resolved]
  - Back pain [Not Recovered/Not Resolved]
  - Mood altered [Not Recovered/Not Resolved]
  - Behaviour disorder [Not Recovered/Not Resolved]
  - Drug interaction [Not Recovered/Not Resolved]
  - Somnolence [Not Recovered/Not Resolved]
  - Irritability [Not Recovered/Not Resolved]
  - Depressed mood [Not Recovered/Not Resolved]
  - Depression [Not Recovered/Not Resolved]
  - Drug ineffective [Not Recovered/Not Resolved]
  - Unevaluable event [Not Recovered/Not Resolved]
